FAERS Safety Report 12789865 (Version 1)
Quarter: 2016Q3

REPORT INFORMATION
  Report Type: Spontaneous
  Country: DE (occurrence: DE)
  Receive Date: 20160928
  Receipt Date: 20160928
  Transmission Date: 20161109
  Serious: Yes (Other)
  Sender: FDA-Public Use
  Company Number: DE-TAKEDA-2016TUS016956

PATIENT
  Sex: Female
  Weight: 75 kg

DRUGS (2)
  1. BRINTELLIX [Suspect]
     Active Substance: VORTIOXETINE HYDROBROMIDE
     Indication: ANXIETY
  2. BRINTELLIX [Suspect]
     Active Substance: VORTIOXETINE HYDROBROMIDE
     Indication: DEPRESSION
     Dosage: UNK
     Route: 065

REACTIONS (13)
  - Fatigue [Unknown]
  - Electrocardiogram QT prolonged [Unknown]
  - Pharyngeal hypoaesthesia [Unknown]
  - Hypoaesthesia [Unknown]
  - Nausea [Unknown]
  - Feeling cold [Unknown]
  - Dysphagia [Unknown]
  - Pain in extremity [Unknown]
  - Extrasystoles [Unknown]
  - Chest discomfort [Unknown]
  - Withdrawal syndrome [Unknown]
  - Drug ineffective [Unknown]
  - Diarrhoea [Unknown]
